FAERS Safety Report 20795707 (Version 1)
Quarter: 2022Q2

REPORT INFORMATION
  Report Type: Spontaneous
  Country: GB (occurrence: GB)
  Receive Date: 20220506
  Receipt Date: 20220506
  Transmission Date: 20220721
  Serious: Yes (Other)
  Sender: FDA-Public Use
  Company Number: GB-LUPIN PHARMACEUTICALS INC.-2022-06589

PATIENT
  Age: 58 Year
  Sex: Female

DRUGS (3)
  1. LAPATINIB [Suspect]
     Active Substance: LAPATINIB
     Indication: Gallbladder cancer stage IV
     Dosage: 1250 MG, QD EVERY 21 DAYS
     Route: 065
     Dates: start: 202011, end: 2021
  2. TRASTUZUMAB [Suspect]
     Active Substance: TRASTUZUMAB
     Indication: Gallbladder cancer stage IV
     Dosage: 8 MILLIGRAM/KILOGRAM (LOADING DOSE)
     Route: 065
     Dates: start: 202011
  3. TRASTUZUMAB [Suspect]
     Active Substance: TRASTUZUMAB
     Dosage: 6 MILLIGRAM/KILOGRAM
     Route: 065
     Dates: start: 202011, end: 202103

REACTIONS (3)
  - Diarrhoea [Unknown]
  - Drug resistance [Unknown]
  - Off label use [Unknown]

NARRATIVE: CASE EVENT DATE: 20210101
